FAERS Safety Report 5707479-3 (Version None)
Quarter: 2008Q2

REPORT INFORMATION
  Report Type: 
  Country: None (occurrence: None)
  Receive Date: 20080416
  Receipt Date: 20080404
  Transmission Date: 20081010
  Serious: Yes (Disabling)
  Sender: FDA-Public Use
  Company Number: IE-ELI_LILLY_AND_COMPANY-IE200712001137

PATIENT
  Age: 18 Year
  Sex: Female
  Weight: 85 kg

DRUGS (6)
  1. CYMBALTA [Suspect]
     Indication: DEPRESSION
     Dosage: 60 MG, UNKNOWN
     Route: 065
     Dates: start: 20071124, end: 20071207
  2. TRAMADOL HCL [Concomitant]
     Indication: ABDOMINAL PAIN
     Dosage: 300 MG, DAILY (1/D)
     Route: 065
  3. TRAMADOL HCL [Concomitant]
     Dosage: 100 MG, 3/D
     Route: 048
     Dates: start: 20071128, end: 20071203
  4. INDERAL [Concomitant]
     Dosage: 40 MG, UNKNOWN
     Route: 065
  5. INDERAL [Concomitant]
     Dosage: 80 MG, DAILY (1/D)
     Route: 048
     Dates: start: 20071102
  6. PARACETAMOL [Concomitant]

REACTIONS (1)
  - HYPOTONIC URINARY BLADDER [None]
